FAERS Safety Report 5340662-8 (Version None)
Quarter: 2007Q2

REPORT INFORMATION
  Report Type: 
  Country: None (occurrence: None)
  Receive Date: 20070405
  Receipt Date: 20061213
  Transmission Date: 20071010
  Serious: No
  Sender: FDA-Public Use
  Company Number: US200612002279

PATIENT
  Age: 69 Year
  Sex: Female

DRUGS (3)
  1. CYMBALTA [Suspect]
     Indication: PARAESTHESIA
     Dosage: 30 MG
     Dates: start: 20061011, end: 20061101
  2. PRILOSEC [Concomitant]
  3. MAXZIDE [Concomitant]

REACTIONS (1)
  - TINNITUS [None]
